FAERS Safety Report 11248024 (Version 1)
Quarter: 2015Q3

REPORT INFORMATION
  Report Type: Spontaneous
  Country: FR (occurrence: None)
  Receive Date: 20150706
  Receipt Date: 20150706
  Transmission Date: 20151125
  Serious: Yes (Hospitalization)
  Sender: FDA-Public Use
  Company Number: CO-UX-FR-2015-005

PATIENT
  Age: 74 Year
  Sex: Male

DRUGS (13)
  1. COVERSYL (UNKNOWN) (PERINDOPRIL ERBUMINE) [Concomitant]
  2. PANTOPRAZOLE SODIUM. [Suspect]
     Active Substance: PANTOPRAZOLE SODIUM
     Indication: PRODUCT USED FOR UNKNOWN INDICATION
     Route: 048
     Dates: start: 201503, end: 20150405
  3. TENORMINE (UNKNOWN) (ATENOLOL) [Concomitant]
  4. XATRAL LP [Suspect]
     Active Substance: ALFUZOSIN
     Indication: PRODUCT USED FOR UNKNOWN INDICATION
     Route: 048
     Dates: start: 201503, end: 20150413
  5. SPECIAFOLDINE [Suspect]
     Active Substance: FOLIC ACID
     Indication: PRODUCT USED FOR UNKNOWN INDICATION
     Route: 048
     Dates: start: 20150325, end: 20150414
  6. TARDYFERON [Suspect]
     Active Substance: FERROUS SULFATE\FOLIC ACID
     Indication: PRODUCT USED FOR UNKNOWN INDICATION
     Route: 048
     Dates: start: 20150325, end: 20150414
  7. KARDEGIC (UNKNOWN) (ACETYLSALICYLATE LYSINE) [Concomitant]
  8. DOLIPRANE [Suspect]
     Active Substance: ACETAMINOPHEN
     Indication: PRODUCT USED FOR UNKNOWN INDICATION
     Route: 048
     Dates: start: 201503, end: 20150413
  9. PRAVASTATIN SODIUM (UNKNOWN) [Suspect]
     Active Substance: PRAVASTATIN SODIUM
     Indication: PRODUCT USED FOR UNKNOWN INDICATION
     Route: 048
     Dates: start: 201503, end: 20150413
  10. IMOVANE [Suspect]
     Active Substance: ZOPICLONE
     Indication: PRODUCT USED FOR UNKNOWN INDICATION
     Route: 048
     Dates: start: 201503, end: 20150413
  11. CORDARONE [Suspect]
     Active Substance: AMIODARONE HYDROCHLORIDE
     Indication: PRODUCT USED FOR UNKNOWN INDICATION
     Route: 048
     Dates: start: 201503, end: 20150413
  12. LOVENOX (UNKNOWN) (ENOXAPAPRIN SODIUM) [Concomitant]
  13. PERINDOPRIL (UNKNOWN) (PERINDOPRIL) [Concomitant]

REACTIONS (1)
  - Hepatitis cholestatic [None]

NARRATIVE: CASE EVENT DATE: 201504
